FAERS Safety Report 9823428 (Version 3)
Quarter: 2015Q3

REPORT INFORMATION
  Report Type: Spontaneous
  Country: US (occurrence: US)
  Receive Date: 20140116
  Receipt Date: 20150807
  Transmission Date: 20151125
  Serious: No
  Sender: FDA-Public Use
  Company Number: US-GILEAD-2011-0035166

PATIENT
  Age: 75 Year
  Sex: Male
  Weight: 73 kg

DRUGS (5)
  1. LETAIRIS [Suspect]
     Active Substance: AMBRISENTAN
     Indication: PULMONARY HYPERTENSION
     Route: 048
     Dates: start: 20101223
  2. LETAIRIS [Suspect]
     Active Substance: AMBRISENTAN
     Indication: INTERSTITIAL LUNG DISEASE
  3. LASIX [Concomitant]
     Active Substance: FUROSEMIDE
  4. KLOR-CON [Concomitant]
     Active Substance: POTASSIUM CHLORIDE
  5. ASA [Concomitant]
     Active Substance: ASPIRIN

REACTIONS (8)
  - Headache [Recovered/Resolved]
  - Peripheral coldness [Unknown]
  - Peripheral swelling [Recovered/Resolved]
  - Chills [Recovered/Resolved]
  - Flushing [Unknown]
  - Nausea [Recovered/Resolved]
  - Dyspnoea [Recovered/Resolved]
  - Palpitations [Unknown]

NARRATIVE: CASE EVENT DATE: 20101225
